FAERS Safety Report 7241368-0 (Version None)
Quarter: 2011Q1

REPORT INFORMATION
  Report Type: 
  Country: None (occurrence: None)
  Receive Date: 20110124
  Receipt Date: 20110119
  Transmission Date: 20110831
  Serious: Yes (Death, Hospitalization, Other)
  Sender: FDA-Public Use
  Company Number: ES-BAYER-201035325GPV

PATIENT
  Sex: Male

DRUGS (16)
  1. METHADONE [Concomitant]
     Dosage: 15 MG, QD
     Route: 042
     Dates: start: 20100801, end: 20100810
  2. SEGURIL [Concomitant]
     Indication: ASCITES
     Dosage: 40 MG, QD
     Route: 042
     Dates: start: 20100809, end: 20100810
  3. FORTECORTIN [Concomitant]
     Dosage: 6 MG, QD
     Route: 048
  4. MAGNESIUM [Concomitant]
     Indication: CONSTIPATION
     Route: 048
  5. SEGURIL [Concomitant]
     Dosage: 60 MG, QD
     Route: 042
     Dates: start: 20100811, end: 20100815
  6. SINOGAN [Concomitant]
     Dosage: 7 GTT, QD
     Route: 048
  7. RANITIDINE [Concomitant]
     Indication: CONSTIPATION
     Dosage: 300 MG, QD
     Route: 048
  8. ERLOTINIB [Suspect]
     Indication: ASCITES
     Route: 048
     Dates: start: 20100708, end: 20100729
  9. FUROSEMIDE [Concomitant]
     Indication: OEDEMA
     Dosage: 80 MG, QD
     Route: 048
  10. FUROSEMIDE [Concomitant]
     Indication: ASCITES
  11. SORAFENIB (RAF KINASE INHIBITOR) [Suspect]
     Indication: HEPATIC NEOPLASM MALIGNANT
     Dosage: CYCLE 1
     Route: 048
     Dates: start: 20100708, end: 20100729
  12. METHADONE [Concomitant]
     Indication: PAIN
     Dosage: 27 MG, QD
     Route: 048
     Dates: start: 20100722
  13. METHADONE [Concomitant]
     Dosage: 12 MG, QD
     Route: 042
     Dates: start: 20100811, end: 20100812
  14. MORPHINE [Concomitant]
     Indication: PAIN
     Dosage: 5 MG, QD
     Route: 042
     Dates: start: 20100811, end: 20100811
  15. METHADONE [Concomitant]
     Dosage: 14 MG, QD
     Route: 042
     Dates: start: 20100813, end: 20100814
  16. INNOHEP [Concomitant]
     Dosage: UNK
     Route: 058
     Dates: start: 20100722

REACTIONS (3)
  - ASCITES [None]
  - GENERAL PHYSICAL HEALTH DETERIORATION [None]
  - HEPATIC ENCEPHALOPATHY [None]
